FAERS Safety Report 8491194-X (Version None)
Quarter: 2012Q3

REPORT INFORMATION
  Report Type: 
  Country: None (occurrence: None)
  Receive Date: 20120706
  Receipt Date: 20120625
  Transmission Date: 20120928
  Serious: Yes (Other)
  Sender: FDA-Public Use
  Company Number: CA-JNJFOC-20120613049

PATIENT
  Sex: Female
  Weight: 63.8 kg

DRUGS (10)
  1. PANTOPRAZOLE [Concomitant]
     Route: 065
  2. SPIRIVA [Concomitant]
     Route: 065
  3. REMICADE [Suspect]
     Indication: CROHN'S DISEASE
     Route: 042
     Dates: start: 20101217
  4. REMICADE [Suspect]
     Route: 042
     Dates: start: 20120625
  5. ATENOLOL [Concomitant]
     Route: 065
  6. METHOTREXATE [Concomitant]
     Route: 065
  7. WELLBUTRIN [Concomitant]
     Route: 065
  8. ADALAT [Concomitant]
     Route: 065
  9. VITAMIN B-12 [Concomitant]
     Route: 065
  10. LISINOPRIL [Concomitant]
     Route: 065

REACTIONS (3)
  - NAUSEA [None]
  - PAIN [None]
  - VOMITING [None]
